FAERS Safety Report 8302761 (Version 15)
Quarter: 2014Q2

REPORT INFORMATION
  Report Type: Report from Study
  Country: US (occurrence: US)
  Receive Date: 20111220
  Receipt Date: 20140613
  Transmission Date: 20141212
  Serious: Yes (Hospitalization)
  Sender: FDA-Public Use
  Company Number: US-GLAXOSMITHKLINE-A0945647A

PATIENT
  Sex: Female

DRUGS (11)
  1. ADVAIR [Suspect]
     Indication: CHRONIC OBSTRUCTIVE PULMONARY DISEASE
     Route: 055
  2. ALBUTEROL [Suspect]
     Indication: CHRONIC OBSTRUCTIVE PULMONARY DISEASE
     Route: 055
  3. SPIRIVA [Suspect]
     Indication: PRODUCT USED FOR UNKNOWN INDICATION
     Route: 065
  4. ARANESP [Suspect]
     Indication: PRODUCT USED FOR UNKNOWN INDICATION
     Route: 065
  5. UNSPECIFIED MEDICATION [Suspect]
  6. UNKNOWN MEDICATION [Suspect]
     Indication: RED BLOOD CELL COUNT DECREASED
  7. CHEMOTHERAPY [Suspect]
     Route: 065
  8. SIMVASTATIN [Suspect]
     Indication: PRODUCT USED FOR UNKNOWN INDICATION
  9. OXYGEN [Concomitant]
  10. CPAP [Concomitant]
  11. WARFARIN [Concomitant]

REACTIONS (40)
  - Cataract [Recovered/Resolved]
  - Pulmonary congestion [Unknown]
  - Bronchitis [Unknown]
  - Dyspnoea [Unknown]
  - Chronic obstructive pulmonary disease [Unknown]
  - Renal cancer [Unknown]
  - Pulmonary mass [Unknown]
  - Lymphadenopathy [Unknown]
  - Memory impairment [Unknown]
  - Stress [Unknown]
  - Nail ridging [Unknown]
  - Electrocardiogram abnormal [Unknown]
  - Stomatitis [Unknown]
  - Oral pain [Unknown]
  - Diarrhoea [Unknown]
  - Red blood cell count decreased [Unknown]
  - Heart rate increased [Unknown]
  - Feeling abnormal [Unknown]
  - Asthenia [Unknown]
  - Atrial fibrillation [Unknown]
  - Neoplasm malignant [Unknown]
  - Transfusion [Unknown]
  - Malaise [Unknown]
  - Foot operation [Unknown]
  - White blood cell count decreased [Unknown]
  - Haemoglobin decreased [Unknown]
  - Fall [Unknown]
  - Foot fracture [Unknown]
  - Impaired healing [Unknown]
  - Urine odour abnormal [Unknown]
  - Muscle spasms [Unknown]
  - Restless legs syndrome [Unknown]
  - Syncope [Unknown]
  - Head injury [Unknown]
  - Cardiac disorder [Unknown]
  - Urinary tract infection [Unknown]
  - Platelet count decreased [Unknown]
  - Renal cell carcinoma [Unknown]
  - Polyp [Unknown]
  - Barrett^s oesophagus [Unknown]
